FAERS Safety Report 21145557 (Version 2)
Quarter: 2023Q1

REPORT INFORMATION
  Report Type: Spontaneous
  Country: US (occurrence: US)
  Receive Date: 20220729
  Receipt Date: 20230106
  Transmission Date: 20230417
  Serious: No
  Sender: FDA-Public Use
  Company Number: US-KYOWAKIRIN-2022BKK011835

PATIENT

DRUGS (1)
  1. CRYSVITA [Suspect]
     Active Substance: BUROSUMAB-TWZA
     Indication: Hereditary hypophosphataemic rickets
     Dosage: 60 MG, Q4WEEKS
     Route: 058
     Dates: start: 2019

REACTIONS (4)
  - COVID-19 [Unknown]
  - Restlessness [Unknown]
  - Product dose omission issue [Unknown]
  - Incorrect route of product administration [Unknown]
